FAERS Safety Report 26134059 (Version 1)
Quarter: 2025Q4

REPORT INFORMATION
  Report Type: Spontaneous
  Country: US (occurrence: US)
  Receive Date: 20251209
  Receipt Date: 20251209
  Transmission Date: 20260117
  Serious: Yes (Hospitalization, Other)
  Sender: RANBAXY
  Company Number: US-SUN PHARMACEUTICAL INDUSTRIES LTD-2025R1-539881

PATIENT
  Age: 77 Year
  Sex: Male

DRUGS (3)
  1. METHYLPREDNISOLONE [Suspect]
     Active Substance: METHYLPREDNISOLONE
     Indication: Glomerulonephritis
     Dosage: UNK
     Route: 042
  2. PREDNISONE [Suspect]
     Active Substance: PREDNISONE
     Indication: Glomerulonephritis
     Dosage: UNK
     Route: 065
  3. RITUXIMAB [Suspect]
     Active Substance: RITUXIMAB
     Indication: Glomerulonephritis
     Dosage: ONE DOSE
     Route: 065

REACTIONS (7)
  - Oedema peripheral [Unknown]
  - Fall [Unknown]
  - Extradural abscess [Unknown]
  - Condition aggravated [Unknown]
  - Intervertebral discitis [Unknown]
  - Osteomyelitis [Unknown]
  - Enterobacter infection [Unknown]
